FAERS Safety Report 21985031 (Version 1)
Quarter: 2023Q1

REPORT INFORMATION
  Report Type: Spontaneous
  Country: AT (occurrence: AT)
  Receive Date: 20230213
  Receipt Date: 20230213
  Transmission Date: 20230418
  Serious: Yes (Other)
  Sender: FDA-Public Use
  Company Number: AT-PIRAMAL CRITICAL CARE LIMITED-2023-PEL-000090

PATIENT

DRUGS (1)
  1. SEVOFLURANE [Suspect]
     Active Substance: SEVOFLURANE
     Indication: Product used for unknown indication
     Dosage: UNK
     Dates: start: 20230126

REACTIONS (5)
  - IIIrd nerve paralysis [Unknown]
  - Pupillary light reflex tests abnormal [Unknown]
  - Mydriasis [Unknown]
  - Optic nerve disorder [Unknown]
  - Papilloedema [Unknown]

NARRATIVE: CASE EVENT DATE: 20230127
